FAERS Safety Report 5779201-6 (Version None)
Quarter: 2008Q2

REPORT INFORMATION
  Report Type: 
  Country: None (occurrence: None)
  Receive Date: 20080617
  Receipt Date: 20080605
  Transmission Date: 20081010
  Serious: Yes (Hospitalization)
  Sender: FDA-Public Use
  Company Number: GXKR2008GB04684

PATIENT
  Age: 80 Year
  Sex: Female

DRUGS (5)
  1. CODEINE PHOSPHATE (NGX) (CODEINE PHOSPHATE) UNKNOWN [Suspect]
     Indication: PAIN
     Dosage: PRN, ORAL
     Route: 048
     Dates: start: 20080218, end: 20080223
  2. ATENOLOL [Concomitant]
  3. CLOPIDOGREL [Concomitant]
  4. RANITIDINE [Concomitant]
  5. SIMVASTATIN [Concomitant]

REACTIONS (3)
  - CONFUSIONAL STATE [None]
  - DELIRIUM [None]
  - HALLUCINATION [None]
